FAERS Safety Report 24453315 (Version 2)
Quarter: 2024Q4

REPORT INFORMATION
  Report Type: Spontaneous
  Country: FR (occurrence: FR)
  Receive Date: 20241017
  Receipt Date: 20241018
  Transmission Date: 20250114
  Serious: No
  Sender: ROCHE
  Company Number: FR-ROCHE-3324413

PATIENT
  Age: 32 Year
  Sex: Female

DRUGS (11)
  1. RITUXIMAB [Suspect]
     Active Substance: RITUXIMAB
     Indication: Systemic lupus erythematosus
     Route: 065
  2. HYDROXYCHLOROQUINE [Concomitant]
     Active Substance: HYDROXYCHLOROQUINE
     Route: 065
  3. HYDROXYCHLOROQUINE [Concomitant]
     Active Substance: HYDROXYCHLOROQUINE
     Route: 065
  4. METHOTREXATE [Concomitant]
     Active Substance: METHOTREXATE
     Route: 065
  5. THALIDOMIDE [Concomitant]
     Active Substance: THALIDOMIDE
     Route: 065
  6. LENALIDOMIDE [Concomitant]
     Active Substance: LENALIDOMIDE
     Route: 065
  7. USTEKINUMAB [Concomitant]
     Active Substance: USTEKINUMAB
     Route: 065
  8. BELIMUMAB [Concomitant]
     Active Substance: BELIMUMAB
     Route: 065
  9. BELIMUMAB [Concomitant]
     Active Substance: BELIMUMAB
     Dosage: 10 MG/KG/MONTH
     Route: 065
  10. ANIFROLUMAB [Concomitant]
     Active Substance: ANIFROLUMAB
     Route: 042
     Dates: start: 202111
  11. TOZINAMERAN [Concomitant]
     Active Substance: TOZINAMERAN
     Dosage: THREE INJECTIONS

REACTIONS (2)
  - Treatment failure [Unknown]
  - No adverse event [Unknown]
